FAERS Safety Report 24747638 (Version 1)
Quarter: 2024Q4

REPORT INFORMATION
  Report Type: Spontaneous
  Country: PL (occurrence: PL)
  Receive Date: 20241218
  Receipt Date: 20241218
  Transmission Date: 20250115
  Serious: Yes (Other)
  Sender: PFIZER
  Company Number: PL-ROCHE-10000149316

PATIENT
  Age: 76 Year
  Sex: Female
  Weight: 67 kg

DRUGS (18)
  1. BEVACIZUMAB [Suspect]
     Active Substance: BEVACIZUMAB
     Indication: Hepatocellular carcinoma
     Dosage: 1080 MG, EVERY 3 WEEKS
     Route: 042
     Dates: start: 20240523
  2. BEVACIZUMAB [Suspect]
     Active Substance: BEVACIZUMAB
     Dosage: 1080 MG, EVERY 3 WEEKS
     Route: 042
     Dates: start: 20241008
  3. ATEZOLIZUMAB [Suspect]
     Active Substance: ATEZOLIZUMAB
     Indication: Hepatocellular carcinoma
     Dosage: 1200 MG, EVERY 3 WEEKS
     Route: 042
     Dates: start: 20240523
  4. ATEZOLIZUMAB [Suspect]
     Active Substance: ATEZOLIZUMAB
     Dosage: 1200 MG, EVERY 3 WEEKS
     Route: 042
     Dates: start: 20241008
  5. TIRAGOLUMAB [Suspect]
     Active Substance: TIRAGOLUMAB
     Indication: Hepatocellular carcinoma
     Dosage: 600 MG, EVERY 3 WEEKS
     Route: 042
     Dates: start: 20240523
  6. TIRAGOLUMAB [Suspect]
     Active Substance: TIRAGOLUMAB
     Dosage: 600 MG, EVERY 3 WEEKS
     Route: 042
     Dates: start: 20241008
  7. HUMALOG [Concomitant]
     Active Substance: INSULIN LISPRO
     Indication: Diabetes mellitus
     Dosage: 46 IU, 2X/DAY
     Route: 058
     Dates: start: 2023
  8. HUMALOG [Concomitant]
     Active Substance: INSULIN LISPRO
     Indication: Diabetes mellitus
     Dosage: 32 IU, 1X/DAY
     Route: 058
     Dates: start: 2023
  9. TENOX [GIMERACIL;OTERACIL POTASSIUM;TEGAFUR] [Concomitant]
     Indication: Hypertension
     Dosage: 10 MG, 1X/DAY
     Route: 048
     Dates: start: 2014
  10. CARVEDILOL [Concomitant]
     Active Substance: CARVEDILOL
     Indication: Hypertension
     Dosage: 6.25 MG, 2X/DAY
     Route: 048
     Dates: start: 2014
  11. RAMIPRIL [Concomitant]
     Active Substance: RAMIPRIL
     Indication: Hypertension
     Dosage: 5 MG, 1X/DAY
     Route: 048
     Dates: start: 2014
  12. ENTECAVIR [Concomitant]
     Active Substance: ENTECAVIR
     Indication: Hepatitis B reactivation
     Dosage: 75 MG, 1X/DAY (GIVEN FOR PROPHYLAXIS IS YES)
     Route: 048
     Dates: start: 20240430
  13. ASPIRIN [Concomitant]
     Active Substance: ASPIRIN
     Indication: Coronary artery disease
     Dosage: 75 MG, 1X/DAY
     Route: 048
     Dates: start: 2014
  14. URSODIOL [Concomitant]
     Active Substance: URSODIOL
     Indication: Liver injury
     Dosage: 250 MG, 2X/DAY (GIVEN FOR PROPHYLAXIS IS YES)
     Route: 048
  15. RIDLIP [ATORVASTATIN CALCIUM] [Concomitant]
     Dosage: 20 MG, 1X/DAY
     Route: 048
     Dates: start: 2014
  16. BETAMETHASONE DIPROPIONATE\GENTAMICIN SULFATE [Concomitant]
     Active Substance: BETAMETHASONE DIPROPIONATE\GENTAMICIN SULFATE
     Dosage: UNK UNK, 2X/DAY
     Route: 062
     Dates: start: 20241005, end: 20241015
  17. ANTAZOLINE HYDROCHLORIDE [Concomitant]
     Active Substance: ANTAZOLINE HYDROCHLORIDE
     Dosage: 100 MG, 1X/DAY
     Route: 058
     Dates: start: 20241005, end: 20241015
  18. ELITASONE [Concomitant]
     Dosage: UNK, 2X/DAY
     Route: 062
     Dates: start: 20240930, end: 20241005

REACTIONS (2)
  - Autoimmune thyroiditis [Recovering/Resolving]
  - Off label use [Unknown]

NARRATIVE: CASE EVENT DATE: 20240523
